FAERS Safety Report 18585533 (Version 1)
Quarter: 2020Q4

REPORT INFORMATION
  Report Type: Spontaneous
  Country: US (occurrence: US)
  Receive Date: 20201128
  Receipt Date: 20201128
  Transmission Date: 20210114
  Serious: Yes (Hospitalization)
  Sender: FDA-Public Use
  Company Number: None

PATIENT
  Age: 15 Year
  Sex: Male
  Weight: 58.2 kg

DRUGS (36)
  1. FEET ENEMA [Concomitant]
  2. LACTULOSE. [Concomitant]
     Active Substance: LACTULOSE
  3. ONDASETRON [Concomitant]
     Active Substance: ONDANSETRON
  4. PIPTAZO [Concomitant]
  5. SIMETHICONE SUSP. [Concomitant]
  6. MERCAPTOPURINE. [Suspect]
     Active Substance: MERCAPTOPURINE
     Dates: end: 20201111
  7. OLANZAPINE. [Concomitant]
     Active Substance: OLANZAPINE
  8. FAMOTIDINE. [Concomitant]
     Active Substance: FAMOTIDINE
  9. METHYLPREDNISOLONE. [Concomitant]
     Active Substance: METHYLPREDNISOLONE
  10. TPN + LIPID [Concomitant]
  11. TYLENOL [Concomitant]
     Active Substance: ACETAMINOPHEN
  12. PEG-L-ASPARAGINASE (PEGASPARGASE,, ONCOSPAR) [Concomitant]
     Dates: end: 20200920
  13. PREDNISOLONE. [Concomitant]
     Active Substance: PREDNISOLONE
     Dates: end: 20201021
  14. MELATONIN [Concomitant]
     Active Substance: MELATONIN
  15. NALOXOONE [Concomitant]
  16. RAPID PRE-HYDRATION [Concomitant]
  17. SALINE NEBULIZER [Concomitant]
  18. SENNOSIDES. [Concomitant]
     Active Substance: SENNOSIDES
  19. CYCLOSPHAMIDE [Suspect]
     Active Substance: CYCLOPHOSPHAMIDE
     Dates: end: 20201029
  20. DIMENHYDRINATE. [Concomitant]
     Active Substance: DIMENHYDRINATE
  21. LORAZEPAM. [Concomitant]
     Active Substance: LORAZEPAM
  22. NABILONE [Concomitant]
     Active Substance: NABILONE
  23. CYTARABINE. [Suspect]
     Active Substance: CYTARABINE
     Dates: end: 20201108
  24. DAUNORUBICIN [Suspect]
     Active Substance: DAUNORUBICIN
     Dates: end: 20201014
  25. GELATIN [Concomitant]
     Active Substance: GELATIN
  26. SCOPLOAMINE PATCH [Concomitant]
  27. VITAMIN D [Concomitant]
     Active Substance: VITAMIN D NOS
  28. METHOTREXATE. [Concomitant]
     Active Substance: METHOTREXATE
     Dates: end: 20201112
  29. VINCRISTINE SULFATE. [Concomitant]
     Active Substance: VINCRISTINE SULFATE
     Dates: end: 20201112
  30. CEFTRIAXONE. [Concomitant]
     Active Substance: CEFTRIAXONE
  31. OMEPRAZOLE. [Concomitant]
     Active Substance: OMEPRAZOLE
  32. VITAMIN K [Concomitant]
     Active Substance: PHYTONADIONE
  33. CALCIUM CARBONATE. [Concomitant]
     Active Substance: CALCIUM CARBONATE
  34. COTRIMOXAZOLE SUSP [Concomitant]
  35. HYDROMORPHONE [Concomitant]
     Active Substance: HYDROMORPHONE
  36. PEGALAX [Concomitant]

REACTIONS (8)
  - Gastric perforation [None]
  - Post procedural complication [None]
  - Pancreatitis [None]
  - Abnormal loss of weight [None]
  - Febrile neutropenia [None]
  - Nausea [None]
  - Pancreatic pseudocyst [None]
  - Hyponatraemia [None]

NARRATIVE: CASE EVENT DATE: 20201119
